FAERS Safety Report 20754773 (Version 1)
Quarter: 2022Q2

REPORT INFORMATION
  Report Type: Report from Study
  Country: CA (occurrence: CA)
  Receive Date: 20220427
  Receipt Date: 20220427
  Transmission Date: 20220720
  Serious: Yes (Other)
  Sender: FDA-Public Use
  Company Number: CA-JNJFOC-20211220540

PATIENT
  Age: 34 Year
  Sex: Female
  Weight: 73 kg

DRUGS (2)
  1. REMICADE [Suspect]
     Active Substance: INFLIXIMAB
     Indication: Crohn^s disease
     Dosage: EXPIRY DATE: MAR-2024, LAST INFUSED ON 09-NOV-2021. ?ADDITIONAL EXPIRY DATE : 31-JUL-2024, 01-SEP-20
     Route: 042
  2. SULFASALAZINE [Suspect]
     Active Substance: SULFASALAZINE
     Indication: Product used for unknown indication
     Route: 048

REACTIONS (8)
  - Large intestine polyp [Unknown]
  - Eye inflammation [Unknown]
  - Hypoaesthesia [Not Recovered/Not Resolved]
  - Inflammatory marker increased [Unknown]
  - Abdominal pain [Not Recovered/Not Resolved]
  - Rash vesicular [Not Recovered/Not Resolved]
  - COVID-19 [Recovering/Resolving]
  - Herpes zoster [Recovering/Resolving]

NARRATIVE: CASE EVENT DATE: 20211125
